FAERS Safety Report 8235495-9 (Version None)
Quarter: 2012Q1

REPORT INFORMATION
  Report Type: 
  Country: None (occurrence: None)
  Receive Date: 20120326
  Receipt Date: 20120313
  Transmission Date: 20120608
  Serious: Yes (Other)
  Sender: FDA-Public Use
  Company Number: JP-ROCHE-1037920

PATIENT
  Sex: Female
  Weight: 60 kg

DRUGS (8)
  1. MIRCERA [Suspect]
     Indication: NEPHROGENIC ANAEMIA
     Route: 058
     Dates: start: 20111222, end: 20120118
  2. GASMOTIN [Concomitant]
     Indication: GASTRITIS
     Route: 048
  3. MAGMITT [Concomitant]
     Indication: CONSTIPATION
     Route: 048
  4. EXCELASE (UNK INGREDIENTS) [Concomitant]
     Indication: DYSPEPSIA
     Dosage: DOSAGE IS UNCERTAIN.
     Route: 048
  5. OMEPRAZOLE [Concomitant]
     Indication: GASTRITIS
     Route: 048
  6. AMARYL [Concomitant]
     Indication: DIABETES MELLITUS
     Route: 048
     Dates: end: 20120112
  7. REBAMIPIDE [Concomitant]
     Indication: GASTRITIS
     Route: 048
  8. CONIEL [Concomitant]
     Indication: HYPERTENSION
     Route: 048

REACTIONS (1)
  - APLASIA PURE RED CELL [None]
